FAERS Safety Report 25440211 (Version 1)
Quarter: 2025Q2

REPORT INFORMATION
  Report Type: Spontaneous
  Country: US (occurrence: US)
  Receive Date: 20250616
  Receipt Date: 20250616
  Transmission Date: 20250717
  Serious: Yes (Other)
  Sender: PFIZER
  Company Number: US-PFIZER INC-PV202500070098

PATIENT
  Age: 46 Year
  Sex: Female

DRUGS (9)
  1. SPIRONOLACTONE [Suspect]
     Active Substance: SPIRONOLACTONE
     Indication: Hidradenitis
  2. SPIRONOLACTONE [Suspect]
     Active Substance: SPIRONOLACTONE
  3. CLINDAMYCIN PHOSPHATE [Suspect]
     Active Substance: CLINDAMYCIN PHOSPHATE
     Indication: Hidradenitis
     Route: 061
  4. DOXYCYCLINE HYCLATE [Suspect]
     Active Substance: DOXYCYCLINE HYCLATE
     Indication: Hidradenitis
  5. DOXYCYCLINE [Suspect]
     Active Substance: DOXYCYCLINE
     Indication: Hidradenitis
  6. BENZOYL PEROXIDE\CLINDAMYCIN [Suspect]
     Active Substance: BENZOYL PEROXIDE\CLINDAMYCIN
     Indication: Hidradenitis
     Route: 061
  7. TRIAMCINOLONE ACETONIDE [Suspect]
     Active Substance: TRIAMCINOLONE ACETONIDE
     Indication: Hidradenitis
     Route: 061
  8. KENALOG [Suspect]
     Active Substance: TRIAMCINOLONE ACETONIDE
     Indication: Hidradenitis
     Route: 026
  9. HIBICLENS [Suspect]
     Active Substance: CHLORHEXIDINE GLUCONATE
     Indication: Hidradenitis

REACTIONS (3)
  - Quality of life decreased [Unknown]
  - Drug ineffective for unapproved indication [Unknown]
  - Off label use [Unknown]
